FAERS Safety Report 7112032-3 (Version None)
Quarter: 2010Q4

REPORT INFORMATION
  Report Type: 
  Country: None (occurrence: None)
  Receive Date: 20101119
  Receipt Date: 20101110
  Transmission Date: 20110411
  Serious: Yes (Other)
  Sender: FDA-Public Use
  Company Number: US-PFIZER INC-2010145401

PATIENT
  Sex: Male

DRUGS (3)
  1. XALATAN [Suspect]
     Dosage: 1 GTT, 1X/DAY
     Route: 047
     Dates: end: 20101101
  2. SENOKOT [Concomitant]
     Indication: CONSTIPATION
     Dosage: UNK
  3. HALDOL [Concomitant]
     Indication: AGITATION
     Dosage: UNK

REACTIONS (1)
  - CONJUNCTIVITIS [None]
